FAERS Safety Report 5615875-8 (Version None)
Quarter: 2008Q1

REPORT INFORMATION
  Report Type: 
  Country: None (occurrence: None)
  Receive Date: 20080201
  Receipt Date: 20080122
  Transmission Date: 20080703
  Serious: Yes (Other)
  Sender: FDA-Public Use
  Company Number: 2008AP000271

PATIENT
  Age: 38 Year
  Sex: Male

DRUGS (7)
  1. PAROXETINE HCL [Suspect]
     Indication: ANXIETY
     Dosage: PO, PO, PO, SYR; PO, 30 MG; PO, PO
     Route: 048
     Dates: start: 19980212
  2. PAROXETINE HCL [Suspect]
     Indication: ANXIETY
     Dosage: PO, PO, PO, SYR; PO, 30 MG; PO, PO
     Route: 048
     Dates: start: 19980212
  3. PAROXETINE HCL [Suspect]
     Indication: ANXIETY
     Dosage: PO, PO, PO, SYR; PO, 30 MG; PO, PO
     Route: 048
     Dates: start: 20010201
  4. PAROXETINE HCL [Suspect]
     Indication: ANXIETY
     Dosage: PO, PO, PO, SYR; PO, 30 MG; PO, PO
     Route: 048
     Dates: start: 20010312
  5. PAROXETINE HCL [Suspect]
     Indication: ANXIETY
     Dosage: PO, PO, PO, SYR; PO, 30 MG; PO, PO
     Route: 048
     Dates: start: 20041101
  6. PAROXETINE HCL [Suspect]
     Indication: ANXIETY
     Dosage: PO, PO, PO, SYR; PO, 30 MG; PO, PO
     Route: 048
     Dates: start: 20050526
  7. PAROXETINE HCL [Suspect]
     Indication: ANXIETY
     Dosage: PO, PO, PO, SYR; PO, 30 MG; PO, PO
     Route: 048
     Dates: start: 20060201

REACTIONS (17)
  - AGGRESSION [None]
  - ANXIETY [None]
  - CONDITION AGGRAVATED [None]
  - DEPRESSION [None]
  - DISTURBANCE IN ATTENTION [None]
  - DIZZINESS [None]
  - DRUG WITHDRAWAL SYNDROME [None]
  - INFLUENZA [None]
  - LETHARGY [None]
  - LIBIDO INCREASED [None]
  - MEMORY IMPAIRMENT [None]
  - MOOD SWINGS [None]
  - NIGHTMARE [None]
  - PARAESTHESIA [None]
  - SLEEP DISORDER [None]
  - TREMOR [None]
  - VERBAL ABUSE [None]
